FAERS Safety Report 4507182-1 (Version None)
Quarter: 2004Q4

REPORT INFORMATION
  Report Type: 
  Country: None (occurrence: None)
  Receive Date: 20041115
  Receipt Date: 20041103
  Transmission Date: 20050328
  Serious: Yes (Death, Hospitalization)
  Sender: FDA-Public Use
  Company Number: SAGL-ZLB/04/06/FRA

PATIENT
  Age: 35 Year
  Sex: Male

DRUGS (1)
  1. SANDOGLOBULIN [Suspect]
     Dosage: 12 G, IV
     Route: 042
     Dates: start: 20040227, end: 20040227

REACTIONS (4)
  - BONE MARROW TRANSPLANT [None]
  - DYSPNOEA [None]
  - OXYGEN SATURATION DECREASED [None]
  - SEPSIS [None]
